FAERS Safety Report 6915171-2 (Version None)
Quarter: 2010Q3

REPORT INFORMATION
  Report Type: 
  Country: None (occurrence: None)
  Receive Date: 20100809
  Receipt Date: 20090810
  Transmission Date: 20110219
  Serious: No
  Sender: FDA-Public Use
  Company Number: US-TYCO HEALTHCARE/MALLINCKRODT-T200901513

PATIENT
  Sex: Female
  Weight: 78.005 kg

DRUGS (3)
  1. OPTIRAY 350 [Suspect]
     Indication: COMPUTERISED TOMOGRAM ABDOMEN
     Dosage: 95 ML, SINGLE
     Route: 042
     Dates: start: 20090706, end: 20090706
  2. SODIUM CHLORIDE [Suspect]
     Indication: INJECTION
     Dosage: 5 ML, SINGLE
     Route: 042
     Dates: start: 20090706, end: 20090706
  3. SODIUM CHLORIDE [Suspect]
     Dosage: 20 ML, SINGLE
     Route: 042
     Dates: start: 20090706, end: 20090706

REACTIONS (1)
  - PRURITUS [None]
